FAERS Safety Report 4764959-5 (Version None)
Quarter: 2005Q3

REPORT INFORMATION
  Report Type: 
  Country: None (occurrence: None)
  Receive Date: 20050907
  Receipt Date: 20050824
  Transmission Date: 20060218
  Serious: Yes (Other)
  Sender: FDA-Public Use
  Company Number: 2005-0008587

PATIENT
  Age: 38 Year
  Sex: Male
  Weight: 98.6 kg

DRUGS (11)
  1. TENOFOVIR DISOPROXIL FUMARATE (TENOFOVIR DISOPROXIL FUMARATE) [Suspect]
     Indication: HIV INFECTION
     Dosage: 300 MG, 1 IN 1 D, ORAL
     Route: 048
     Dates: start: 20050131, end: 20050727
  2. TENOFOVIR DISOPROXIL FUMARATE (TENOFOVIR DISOPROXIL FUMARATE) [Suspect]
     Indication: HIV INFECTION
     Dosage: 300 MG, 1 IN 1 D, ORAL
     Route: 048
     Dates: start: 20050806
  3. EMTRICITABINE (EMTRICITABINE) [Suspect]
     Indication: HIV INFECTION
     Dosage: 200 MG, 1 IN  D, ORAL
     Route: 048
     Dates: start: 20050131, end: 20050727
  4. EMTRICITABINE (EMTRICITABINE) [Suspect]
     Indication: HIV INFECTION
     Dosage: 200 MG, 1 IN  D, ORAL
     Route: 048
     Dates: start: 20050806
  5. KALETRA [Suspect]
     Indication: HIV INFECTION
     Dosage: 1 IN 1 D, ORAL
     Route: 048
     Dates: start: 20050131, end: 20050727
  6. KALETRA [Suspect]
     Indication: HIV INFECTION
     Dosage: 1 IN 1 D, ORAL
     Route: 048
     Dates: start: 20050806
  7. MULTIVITAMIN [Concomitant]
  8. VITAMIN C (ASCORBIC ACID) [Concomitant]
  9. VITAMIN B COMPLEX (B-KOMPLEX ^LECIVA^) [Concomitant]
  10. VITAMIN E [Concomitant]
  11. ASPIRIN [Concomitant]

REACTIONS (3)
  - ALCOHOL USE [None]
  - BLOOD TRIGLYCERIDES INCREASED [None]
  - LIPASE INCREASED [None]
